FAERS Safety Report 13843197 (Version 2)
Quarter: 2017Q4

REPORT INFORMATION
  Report Type: Spontaneous
  Country: US (occurrence: US)
  Receive Date: 20170808
  Receipt Date: 20171108
  Transmission Date: 20180320
  Serious: Yes (Other)
  Sender: FDA-Public Use
  Company Number: US-TEVA-777258USA

PATIENT
  Sex: Female

DRUGS (11)
  1. DESVENLAFAXINE SODIUM [Suspect]
     Active Substance: DESVENLAFAXINE
     Indication: DEPRESSION
     Route: 065
     Dates: start: 20170321, end: 20170412
  2. PRISTIQ EXTENDED-RELEASE [Concomitant]
     Active Substance: DESVENLAFAXINE SUCCINATE
     Indication: DEPRESSION
  3. CALCIUM [Concomitant]
     Active Substance: CALCIUM
  4. PEPCID [Concomitant]
     Active Substance: FAMOTIDINE
  5. DEPLIN [Concomitant]
     Active Substance: LEVOMEFOLATE CALCIUM
  6. ARIPIPRAZOLE. [Concomitant]
     Active Substance: ARIPIPRAZOLE
  7. CETIRIZINE [Concomitant]
     Active Substance: CETIRIZINE HYDROCHLORIDE
  8. VITAMIN D [Concomitant]
     Active Substance: CHOLECALCIFEROL
  9. MODAFINIL. [Concomitant]
     Active Substance: MODAFINIL
  10. VITAMIN B COMPLEX [Concomitant]
     Active Substance: CYANOCOBALAMIN\DEXPANTHENOL\NIACINAMIDE\PYRIDOXINE HYDROCHLORIDE\RIBOFLAVIN 5^-PHOSPHATE SODIUM\THIAMINE HYDROCHLORIDE\VITAMIN B COMPLEX
  11. COLACE [Concomitant]
     Active Substance: DOCUSATE SODIUM

REACTIONS (4)
  - Product substitution issue [Unknown]
  - Suicide attempt [Recovered/Resolved]
  - Depression [Recovered/Resolved]
  - Drug ineffective [Unknown]

NARRATIVE: CASE EVENT DATE: 2017
